FAERS Safety Report 6197722-1 (Version None)
Quarter: 2009Q2

REPORT INFORMATION
  Report Type: 
  Country: None (occurrence: None)
  Receive Date: 20090521
  Receipt Date: 20090513
  Transmission Date: 20091009
  Serious: Yes (Hospitalization)
  Sender: FDA-Public Use
  Company Number: US-AVENTIS-200915060GDDC

PATIENT
  Age: 63 Year
  Sex: Female
  Weight: 61.8 kg

DRUGS (18)
  1. TAXOTERE [Suspect]
     Route: 042
     Dates: start: 20051028
  2. OTHER ANTINEOPLASTIC AGENTS [Suspect]
     Dosage: DOSE: UNK
     Route: 048
     Dates: start: 20051028
  3. GRANISETRON HCL [Concomitant]
     Dates: start: 20051028
  4. LORAZEPAM [Concomitant]
     Dates: start: 20051028
  5. OXYBUTYNIN CHLORIDE [Concomitant]
     Dates: start: 20051108
  6. BISACODYL [Concomitant]
     Dates: start: 20051108
  7. LACTULOSE [Concomitant]
     Dates: start: 20051013
  8. ALBUTEROL [Concomitant]
     Dates: start: 20020726
  9. IPRATROPIUM BROMIDE [Concomitant]
     Dates: start: 20020726
  10. SERETIDE MITE [Concomitant]
     Dates: start: 20030107
  11. PAROXETINE HYDROCHLORIDE [Concomitant]
     Dates: start: 20020517
  12. ALENDRONATE SODIUM [Concomitant]
     Dates: start: 20050816
  13. MORPHINE SULFATE [Concomitant]
     Dates: start: 20050906
  14. GABAPENTIN [Concomitant]
     Dates: start: 20030923
  15. FENTANYL [Concomitant]
     Dates: start: 20051001
  16. CALCIUM CARBONATE [Concomitant]
     Dates: start: 20050517
  17. ERGOCALCIFEROL [Concomitant]
     Dates: start: 20050517
  18. GUAIFENESIN [Concomitant]
     Dates: start: 20051013

REACTIONS (3)
  - DEHYDRATION [None]
  - NEUTROPENIA [None]
  - STOMATITIS [None]
